FAERS Safety Report 9101111 (Version 1)
Quarter: 2013Q1

REPORT INFORMATION
  Report Type: Spontaneous
  Country: US (occurrence: US)
  Receive Date: 20130218
  Receipt Date: 20130218
  Transmission Date: 20140127
  Serious: No
  Sender: FDA-Public Use
  Company Number: US-ROCHE-1040671

PATIENT
  Sex: Female

DRUGS (4)
  1. TORADOL [Suspect]
     Indication: PRODUCT USED FOR UNKNOWN INDICATION
     Route: 065
  2. TRAZODONE [Concomitant]
  3. CLONAZEPAM [Concomitant]
  4. ZOLOFT [Concomitant]
     Dosage: 1 AND HALF TABLET EVERY DAY
     Route: 048

REACTIONS (1)
  - Drug hypersensitivity [Unknown]
